FAERS Safety Report 11388449 (Version 2)
Quarter: 2015Q3

REPORT INFORMATION
  Report Type: Spontaneous
  Country: FR (occurrence: FR)
  Receive Date: 20150817
  Receipt Date: 20150817
  Transmission Date: 20151125
  Serious: Yes (Hospitalization, Disabling)
  Sender: FDA-Public Use
  Company Number: FR-SA-2015SA120204

PATIENT
  Age: 68 Year
  Sex: Male

DRUGS (1)
  1. PLAVIX [Suspect]
     Active Substance: CLOPIDOGREL BISULFATE
     Indication: SURGERY
     Route: 065
     Dates: start: 2007

REACTIONS (4)
  - Haemorrhage [Unknown]
  - Hearing impaired [Unknown]
  - Salivary hypersecretion [Unknown]
  - Blindness [Unknown]
